FAERS Safety Report 9408297 (Version 1)
Quarter: 2013Q3

REPORT INFORMATION
  Report Type: Spontaneous
  Country: BR (occurrence: BR)
  Receive Date: 20130718
  Receipt Date: 20130718
  Transmission Date: 20140515
  Serious: Yes (Hospitalization)
  Sender: FDA-Public Use
  Company Number: BR-GLAXOSMITHKLINE-A1033753A

PATIENT
  Age: 5 Year
  Sex: Female
  Weight: 17 kg

DRUGS (7)
  1. FLIXOTIDE [Suspect]
     Indication: ASTHMA
     Dosage: 2Z TWICE PER DAY
     Route: 055
     Dates: start: 20130415, end: 20130420
  2. FUROSEMIDE [Concomitant]
  3. ALDACTONE [Concomitant]
  4. ENALAPRIL [Concomitant]
  5. SELOZOK [Concomitant]
  6. NEULEPTIL [Concomitant]
  7. RISPERIDONE [Concomitant]

REACTIONS (3)
  - Asthmatic crisis [Recovered/Resolved]
  - Pneumonia [Unknown]
  - Pyrexia [Unknown]
